FAERS Safety Report 6455254-7 (Version None)
Quarter: 2009Q4

REPORT INFORMATION
  Report Type: 
  Country: None (occurrence: None)
  Receive Date: 20091119
  Receipt Date: 20091111
  Transmission Date: 20100525
  Serious: Yes (Other)
  Sender: FDA-Public Use
  Company Number: 1000010079

PATIENT
  Age: 30 Year
  Sex: Female

DRUGS (2)
  1. THYROID TAB [Suspect]
     Indication: HYPOTHYROIDISM
     Dosage: 180 MG (180 MG, 1 IN 1 D), ORAL
     Route: 048
     Dates: start: 20080901
  2. CYTOMEL [Concomitant]

REACTIONS (7)
  - FEELING ABNORMAL [None]
  - GOITRE [None]
  - INSOMNIA [None]
  - MYALGIA [None]
  - SKIN EXFOLIATION [None]
  - SLUGGISHNESS [None]
  - THYROTOXIC CRISIS [None]
